FAERS Safety Report 19960217 (Version 1)
Quarter: 2021Q4

REPORT INFORMATION
  Report Type: Spontaneous
  Country: CN (occurrence: CN)
  Receive Date: 20211015
  Receipt Date: 20211015
  Transmission Date: 20220303
  Serious: Yes (Hospitalization)
  Sender: FDA-Public Use
  Company Number: CN-BAXTER-2021BAX026930

PATIENT
  Age: 52 Year
  Sex: Female
  Weight: 54 kg

DRUGS (9)
  1. CYCLOPHOSPHAMIDE [Suspect]
     Active Substance: CYCLOPHOSPHAMIDE
     Indication: Thymoma malignant
     Route: 041
     Dates: start: 20191225, end: 20191225
  2. CYCLOPHOSPHAMIDE [Suspect]
     Active Substance: CYCLOPHOSPHAMIDE
     Dosage: DOSE REINTRODUCED
     Route: 041
  3. SODIUM CHLORIDE [Suspect]
     Active Substance: SODIUM CHLORIDE
     Indication: Medication dilution
     Dosage: 0.9% SODIUM CHLORIDE+CYCLOPHOSPHAMIDE INJECTION
     Route: 041
     Dates: start: 20191225, end: 20191225
  4. SODIUM CHLORIDE [Suspect]
     Active Substance: SODIUM CHLORIDE
     Dosage: 0.9% SODIUM CHLORIDE+CISPLATIN FOR INJECTION
     Route: 041
     Dates: start: 20191225, end: 20191227
  5. DEXTROSE [Suspect]
     Active Substance: DEXTROSE
     Indication: Medication dilution
     Dosage: 5% GLUCOSE+PIRARUBICIN HYDROCHLORIDE
     Route: 041
     Dates: start: 20191225, end: 20191225
  6. CISPLATIN [Suspect]
     Active Substance: CISPLATIN
     Indication: Thymoma malignant
     Route: 041
     Dates: start: 20191225, end: 20191227
  7. CISPLATIN [Suspect]
     Active Substance: CISPLATIN
     Route: 041
  8. PIRARUBICIN HYDROCHLORIDE [Suspect]
     Active Substance: PIRARUBICIN HYDROCHLORIDE
     Indication: Thymoma malignant
     Route: 041
     Dates: start: 20191225, end: 20191225
  9. PIRARUBICIN HYDROCHLORIDE [Suspect]
     Active Substance: PIRARUBICIN HYDROCHLORIDE
     Dosage: DOSE REINTRODUCED
     Route: 041

REACTIONS (1)
  - Granulocytopenia [Recovering/Resolving]

NARRATIVE: CASE EVENT DATE: 20200114
